FAERS Safety Report 8182382-0 (Version None)
Quarter: 2012Q1

REPORT INFORMATION
  Report Type: 
  Country: None (occurrence: None)
  Receive Date: 20120303
  Receipt Date: 20120228
  Transmission Date: 20120608
  Serious: Yes (Hospitalization, Other)
  Sender: FDA-Public Use
  Company Number: US-ABBOTT-12P-163-0909911-00

PATIENT
  Sex: Male

DRUGS (2)
  1. LORTAB [Concomitant]
     Indication: PRODUCT USED FOR UNKNOWN INDICATION
  2. HUMIRA [Suspect]
     Indication: PSORIASIS
     Dates: end: 20090701

REACTIONS (5)
  - HAEMATOCHEZIA [None]
  - FATIGUE [None]
  - WEIGHT DECREASED [None]
  - LEUKAEMIA [None]
  - PYREXIA [None]
